FAERS Safety Report 22649377 (Version 1)
Quarter: 2023Q2

REPORT INFORMATION
  Report Type: Spontaneous
  Country: US (occurrence: None)
  Receive Date: 20230626
  Receipt Date: 20230626
  Transmission Date: 20230722
  Serious: Yes (Hospitalization)
  Sender: FDA-Public Use
  Company Number: None

PATIENT
  Sex: Female

DRUGS (1)
  1. OCTREOTIDE [Suspect]
     Active Substance: OCTREOTIDE
     Indication: Asthenia
     Dosage: 200 MCG/ML INJECTION??INJECT 1 ML (200MCG) UNDER THE SKING (SUBCUTATNEOUS INJECTION) THREE TIMES DAI
     Dates: start: 20230602

REACTIONS (1)
  - Injection site pain [None]
